FAERS Safety Report 6787421-7 (Version None)
Quarter: 2010Q2

REPORT INFORMATION
  Report Type: 
  Country: None (occurrence: None)
  Receive Date: 20100623
  Receipt Date: 20070302
  Transmission Date: 20101027
  Serious: Yes (Other)
  Sender: FDA-Public Use
  Company Number: US-PFIZER INC-2007002450

PATIENT
  Sex: Female

DRUGS (2)
  1. SOMAVERT [Suspect]
     Indication: ACROMEGALY
     Dates: start: 20061101
  2. SOMAVERT [Suspect]

REACTIONS (2)
  - PAIN [None]
  - PITUITARY TUMOUR BENIGN [None]
